FAERS Safety Report 19237111 (Version 1)
Quarter: 2021Q2

REPORT INFORMATION
  Report Type: Spontaneous
  Country: US (occurrence: US)
  Receive Date: 20210509
  Receipt Date: 20210509
  Transmission Date: 20210717
  Serious: Yes (Life-Threatening, Hospitalization, Disabling)
  Sender: FDA-Public Use
  Company Number: None

PATIENT
  Age: 61 Year
  Sex: Male
  Weight: 69.3 kg

DRUGS (2)
  1. ALPRAZOLAM. [Suspect]
     Active Substance: ALPRAZOLAM
     Indication: INSOMNIA
     Route: 048
  2. XANAX [Concomitant]
     Active Substance: ALPRAZOLAM

REACTIONS (7)
  - Stress [None]
  - Atrial fibrillation [None]
  - Withdrawal syndrome [None]
  - Viral infection [None]
  - Anxiety [None]
  - Dyspepsia [None]
  - Drug dependence [None]

NARRATIVE: CASE EVENT DATE: 20040601
